FAERS Safety Report 9331006 (Version 2)
Quarter: 2013Q3

REPORT INFORMATION
  Report Type: Spontaneous
  Country: US (occurrence: US)
  Receive Date: 20130605
  Receipt Date: 20130903
  Transmission Date: 20140515
  Serious: Yes (Other)
  Sender: FDA-Public Use
  Company Number: US-PFIZER INC-2013169136

PATIENT
  Age: 49 Year
  Sex: Female

DRUGS (18)
  1. LYRICA [Suspect]
     Indication: FIBROMYALGIA
     Dosage: 150 MG, 3X/DAY
     Route: 048
     Dates: end: 201302
  2. METFORMIN [Concomitant]
     Dosage: 5 MG, 2X/DAY
  3. WELLBUTRIN [Concomitant]
     Dosage: 300 MG, 1X/DAY
  4. ORPHENADRINE ER [Concomitant]
     Dosage: 100 MG, 2X/DAY
  5. LORTAB [Concomitant]
     Indication: PAIN
     Dosage: 10/500 MG, AS NEEDED
  6. TRAZODONE [Concomitant]
     Dosage: 50 MG, AS NEEDED
  7. IBUPROFEN [Concomitant]
     Dosage: 600 MG, AS NEEDED
  8. PLAQUENIL [Concomitant]
     Dosage: 400 MG, 1X/DAY
  9. AMBIEN [Concomitant]
     Dosage: 5 MG, 1X/DAY
  10. MONTELUKAST [Concomitant]
     Dosage: 10 MG, 1X/DAY
  11. OMEPRAZOLE [Concomitant]
     Dosage: 40 MG, 1X/DAY
  12. LORAZEPAM [Concomitant]
     Dosage: 0.5 MG, 2X/DAY
  13. FOLIC ACID [Concomitant]
     Dosage: 1 MG, 1X/DAY
  14. METHOTREXATE [Concomitant]
     Dosage: 10 MG, WEEKLY
  15. ZYRTEC [Concomitant]
     Dosage: 10 MG, 1X/DAY
  16. PROAIR HFA [Concomitant]
     Dosage: UNK
  17. SYMBICORT [Concomitant]
     Dosage: UNK
  18. PAROXETINE [Concomitant]
     Dosage: UNK, 1X/DAY

REACTIONS (9)
  - Abasia [Unknown]
  - Dysstasia [Unknown]
  - Cholelithiasis [Unknown]
  - Dizziness [Unknown]
  - Somnolence [Unknown]
  - Vomiting [Unknown]
  - Gastrooesophageal reflux disease [Unknown]
  - Diarrhoea [Unknown]
  - Pain [Unknown]
